FAERS Safety Report 9022132 (Version 2)
Quarter: 2013Q1

REPORT INFORMATION
  Report Type: Spontaneous
  Country: DE (occurrence: DE)
  Receive Date: 20130118
  Receipt Date: 20130301
  Transmission Date: 20140127
  Serious: Yes (Hospitalization)
  Sender: FDA-Public Use
  Company Number: PHHY2013DE004487

PATIENT
  Sex: Female

DRUGS (4)
  1. VOLTAREN DISPERS [Suspect]
     Indication: KNEE ARTHROPLASTY
     Route: 048
     Dates: start: 2006, end: 2007
  2. BETAMANN [Concomitant]
     Indication: INTRAOCULAR PRESSURE INCREASED
     Dates: start: 200610, end: 200701
  3. TRAVATAN [Concomitant]
     Indication: INTRAOCULAR PRESSURE INCREASED
     Dates: start: 200610
  4. ANTIHYPERTENSIVES [Concomitant]
     Indication: HYPERTENSION

REACTIONS (2)
  - Glaucoma [Recovered/Resolved]
  - Intraocular pressure increased [Recovered/Resolved]
